FAERS Safety Report 9920889 (Version 1)
Quarter: 2014Q1

REPORT INFORMATION
  Report Type: Spontaneous
  Country: MX (occurrence: MX)
  Receive Date: 20140225
  Receipt Date: 20140225
  Transmission Date: 20141002
  Serious: Yes (Other)
  Sender: FDA-Public Use
  Company Number: MX-009507513-1402MEX006793

PATIENT
  Age: 37 Year
  Sex: Male

DRUGS (13)
  1. ROCURONIUM BROMIDE [Suspect]
     Dosage: UNK
     Route: 023
  2. VECURONIUM BROMIDE [Suspect]
     Dosage: UNK
     Route: 023
  3. ONDANSETRON HYDROCHLORIDE [Suspect]
     Dosage: UNK
     Route: 023
  4. PROPOFOL [Suspect]
     Dosage: UNK
     Route: 023
  5. OMEPRAZOLE [Suspect]
     Route: 023
  6. THIOPENTAL SODIUM [Suspect]
     Route: 023
  7. CEFTRIAXONE SODIUM [Suspect]
     Route: 023
  8. FENTANYL [Suspect]
     Dosage: UNK
     Route: 023
  9. METOCLOPRAMIDE [Suspect]
     Route: 023
  10. ROPIVACAINE [Suspect]
     Route: 023
  11. BUPIVACAINE HYDROCHLORIDE [Suspect]
     Route: 023
  12. ETOMIDATE [Suspect]
     Route: 023
  13. CISATRACURIUM BESYLATE [Suspect]
     Dosage: UNK
     Route: 023

REACTIONS (2)
  - Hypersensitivity [Unknown]
  - Skin test positive [Unknown]
